FAERS Safety Report 4534293-7 (Version None)
Quarter: 2004Q4

REPORT INFORMATION
  Report Type: 
  Country: None (occurrence: None)
  Receive Date: 20041214
  Receipt Date: 20040821
  Transmission Date: 20050328
  Serious: No
  Sender: FDA-Public Use
  Company Number: 2004231140US

PATIENT
  Age: 77 Year
  Sex: Female
  Weight: 57.6 kg

DRUGS (7)
  1. BEXTRA [Suspect]
     Indication: ARTHRITIS
     Dosage: 10 MG , BID
     Dates: start: 20040819
  2. COUMADIN [Concomitant]
  3. LIPITOR [Concomitant]
  4. K-TAB [Concomitant]
  5. LANOXIN [Concomitant]
  6. PERSANTIN INJ [Concomitant]
  7. LASIX [Concomitant]

REACTIONS (1)
  - JOINT SWELLING [None]
